FAERS Safety Report 22028059 (Version 1)
Quarter: 2023Q1

REPORT INFORMATION
  Report Type: Spontaneous
  Country: PL (occurrence: PL)
  Receive Date: 20230223
  Receipt Date: 20230223
  Transmission Date: 20230418
  Serious: Yes (Other)
  Sender: FDA-Public Use
  Company Number: PL-GLAXOSMITHKLINE-PLCH2023007473

PATIENT
  Age: 92 Year
  Sex: Male

DRUGS (1)
  1. VOLTAREN [Suspect]
     Active Substance: DICLOFENAC SODIUM
     Indication: Product used for unknown indication
     Dosage: 1 DF, QD
     Route: 065

REACTIONS (2)
  - Urinary bladder haemorrhage [Unknown]
  - Epistaxis [Unknown]
